FAERS Safety Report 8246925-0 (Version None)
Quarter: 2012Q1

REPORT INFORMATION
  Report Type: 
  Country: None (occurrence: None)
  Receive Date: 20120330
  Receipt Date: 20120320
  Transmission Date: 20120608
  Serious: Yes (Hospitalization)
  Sender: FDA-Public Use
  Company Number: US-SANOFI-AVENTIS-2012SA014363

PATIENT
  Age: 79 Year
  Sex: Male
  Weight: 84.09 kg

DRUGS (7)
  1. HYTRIN [Concomitant]
  2. PRINIVIL [Concomitant]
     Indication: HYPERTENSION
  3. AMLODIPINE BESYLATE [Concomitant]
     Indication: HYPERTENSION
     Dates: end: 20111205
  4. ASPIRIN [Concomitant]
  5. WARFARIN SODIUM [Concomitant]
     Indication: ATRIAL FIBRILLATION
     Dosage: DOSE VARIES
     Dates: start: 20110606
  6. AMIODARONE HCL [Suspect]
     Route: 065
     Dates: start: 20110606, end: 20111121
  7. MULTAQ [Suspect]
     Indication: ATRIAL FIBRILLATION
     Route: 048
     Dates: start: 20111121, end: 20111201

REACTIONS (3)
  - COUGH [None]
  - INTERSTITIAL LUNG DISEASE [None]
  - DYSPNOEA [None]
